FAERS Safety Report 7828704-9 (Version None)
Quarter: 2011Q3

REPORT INFORMATION
  Report Type: 
  Country: None (occurrence: None)
  Receive Date: 20110901
  Receipt Date: 20100826
  Transmission Date: 20111222
  Serious: Yes (Other)
  Sender: FDA-Public Use
  Company Number: 240535USA

PATIENT
  Age: 68 Year
  Sex: Female

DRUGS (2)
  1. METOCLOPRAMIDE [Suspect]
     Dosage: (10 MG)
  2. METOCLOPRAMIDE [Suspect]

REACTIONS (7)
  - DYSKINESIA [None]
  - CONFUSIONAL STATE [None]
  - HALLUCINATION [None]
  - PAIN IN JAW [None]
  - TARDIVE DYSKINESIA [None]
  - DYSTONIA [None]
  - NERVOUSNESS [None]
